FAERS Safety Report 5775557-9 (Version None)
Quarter: 2008Q2

REPORT INFORMATION
  Report Type: 
  Country: None (occurrence: None)
  Receive Date: 20080617
  Receipt Date: 20080611
  Transmission Date: 20081010
  Serious: Yes (Hospitalization, Disabling, Other)
  Sender: FDA-Public Use
  Company Number: BR-ASTRAZENECA-2008UW11817

PATIENT
  Age: 65 Year
  Sex: Female
  Weight: 74 kg

DRUGS (8)
  1. SELOZOK [Suspect]
     Indication: HYPERTENSION
     Route: 048
  2. ADALAT [Concomitant]
     Indication: HYPERTENSION
     Route: 048
  3. FLUOXETINE [Concomitant]
     Route: 048
  4. LACTOBACILLUS [Concomitant]
     Indication: INTESTINAL FUNCTIONAL DISORDER
     Route: 048
  5. ZETSIM [Concomitant]
     Indication: HYPERCHOLESTEROLAEMIA
     Route: 048
  6. ALPRAZOLAM [Concomitant]
     Route: 048
  7. NEOSALDINA [Concomitant]
     Indication: HEADACHE
     Route: 048
  8. OSTEO BI-FLEX [Concomitant]
     Indication: OSTEOPOROSIS PROPHYLAXIS
     Route: 048

REACTIONS (7)
  - BREAST CALCIFICATIONS [None]
  - LYMPHOMA [None]
  - MUSCLE SPASMS [None]
  - NODULE [None]
  - PAIN [None]
  - PAIN IN EXTREMITY [None]
  - WEIGHT DECREASED [None]
